FAERS Safety Report 18820668 (Version 1)
Quarter: 2021Q1

REPORT INFORMATION
  Report Type: Spontaneous
  Country: CN (occurrence: CN)
  Receive Date: 20210202
  Receipt Date: 20210202
  Transmission Date: 20210419
  Serious: Yes (Life-Threatening, Hospitalization)
  Sender: FDA-Public Use
  Company Number: CN-ASTRAZENECA-2021A019782

PATIENT
  Age: 28855 Day
  Sex: Male
  Weight: 55 kg

DRUGS (1)
  1. BREZTRI AEROSPHERE [Suspect]
     Active Substance: BUDESONIDE\FORMOTEROL\GLYCOPYRRONIUM
     Indication: CHRONIC OBSTRUCTIVE PULMONARY DISEASE
     Route: 055
     Dates: start: 20210101, end: 20210102

REACTIONS (4)
  - Bronchial ulceration [Unknown]
  - Fatigue [Unknown]
  - Pharyngeal ulceration [Unknown]
  - Feeding disorder [Unknown]
